FAERS Safety Report 7763944-9 (Version None)
Quarter: 2011Q3

REPORT INFORMATION
  Report Type: 
  Country: None (occurrence: None)
  Receive Date: 20110921
  Receipt Date: 20110908
  Transmission Date: 20111222
  Serious: Yes (Other)
  Sender: FDA-Public Use
  Company Number: US-ELI_LILLY_AND_COMPANY-US201102003270

PATIENT
  Sex: Female
  Weight: 63.946 kg

DRUGS (3)
  1. FORTEO [Suspect]
     Indication: OSTEOPOROSIS
     Dosage: 20 UG, DAILY (1/D)
     Route: 058
     Dates: start: 20101101
  2. FORTEO [Suspect]
     Dosage: 20 UG, DAILY (1/D)
     Route: 058
  3. CALCIUM CARBONATE [Concomitant]

REACTIONS (4)
  - THORACIC VERTEBRAL FRACTURE [None]
  - SPINAL FRACTURE [None]
  - BLOOD CALCIUM INCREASED [None]
  - MULTIPLE MYELOMA [None]
